FAERS Safety Report 20957489 (Version 1)
Quarter: 2022Q2

REPORT INFORMATION
  Report Type: Spontaneous
  Country: US (occurrence: US)
  Receive Date: 20220614
  Receipt Date: 20220614
  Transmission Date: 20220721
  Serious: Yes (Other)
  Sender: FDA-Public Use
  Company Number: US-PFIZER INC-202200822166

PATIENT
  Age: 74 Year
  Sex: Female
  Weight: 52.62 kg

DRUGS (2)
  1. PAXLOVID [Suspect]
     Active Substance: NIRMATRELVIR\RITONAVIR
     Indication: COVID-19 treatment
     Dosage: UNK
     Dates: start: 20220601, end: 20220605
  2. TOPROL XL [Concomitant]
     Active Substance: METOPROLOL SUCCINATE
     Dosage: 12.5 MG, 1X/DAY [ONCE IN THE MORNING ]

REACTIONS (6)
  - Pain [Unknown]
  - Insomnia [Unknown]
  - Burning sensation [Unknown]
  - Rash [Recovered/Resolved]
  - Thermal burn [Unknown]
  - Photosensitivity reaction [Unknown]
